FAERS Safety Report 9442623 (Version 1)
Quarter: 2013Q3

REPORT INFORMATION
  Report Type: Spontaneous
  Country: US (occurrence: None)
  Receive Date: 20130805
  Receipt Date: 20130805
  Transmission Date: 20140515
  Serious: Yes (Hospitalization)
  Sender: FDA-Public Use
  Company Number: None

PATIENT
  Age: 7 Year
  Sex: Male

DRUGS (1)
  1. ACTIMMUNE [Suspect]
     Indication: NEUTROPHIL FUNCTION DISORDER
     Dates: start: 20100625

REACTIONS (3)
  - Pyrexia [None]
  - Fatigue [None]
  - No therapeutic response [None]
